FAERS Safety Report 5976673-9 (Version None)
Quarter: 2008Q4

REPORT INFORMATION
  Report Type: 
  Country: None (occurrence: None)
  Receive Date: 20081203
  Receipt Date: 20081125
  Transmission Date: 20090506
  Serious: Yes (Other)
  Sender: FDA-Public Use
  Company Number: US-JNJFOC-20081200338

PATIENT
  Sex: Female
  Weight: 56.7 kg

DRUGS (2)
  1. RISPERDAL [Suspect]
     Indication: DISTURBANCE IN SOCIAL BEHAVIOUR
     Route: 048
  2. RISPERDAL [Suspect]
     Indication: AGGRESSION
     Route: 048

REACTIONS (5)
  - APHASIA [None]
  - EYELID PTOSIS [None]
  - FACIAL PALSY [None]
  - HYPOPHAGIA [None]
  - SCREAMING [None]
